FAERS Safety Report 6126062-1 (Version None)
Quarter: 2009Q1

REPORT INFORMATION
  Report Type: 
  Country: None (occurrence: None)
  Receive Date: 20090320
  Receipt Date: 20090318
  Transmission Date: 20090719
  Serious: Yes (Life-Threatening, Hospitalization)
  Sender: FDA-Public Use
  Company Number: JP-JNJFOC-20081206618

PATIENT
  Sex: Male
  Weight: 106 kg

DRUGS (3)
  1. RISPERDAL [Suspect]
     Indication: DEPRESSION
     Route: 048
  2. DEPAS [Concomitant]
     Indication: DEPRESSION
     Route: 048
  3. ABILIT [Concomitant]
     Indication: DEPRESSION
     Route: 048

REACTIONS (2)
  - DIABETES MELLITUS [None]
  - DIABETIC KETOACIDOSIS [None]
